FAERS Safety Report 5447036-X (Version None)
Quarter: 2007Q3

REPORT INFORMATION
  Report Type: 
  Country: None (occurrence: None)
  Receive Date: 20070725
  Receipt Date: 20070511
  Transmission Date: 20080115
  Serious: Yes (Hospitalization)
  Sender: FDA-Public Use
  Company Number: 200711927

PATIENT
  Sex: Female

DRUGS (2)
  1. VIVAGLOBIN [Suspect]
     Dosage: 12.5 G Q2W SC
     Route: 058
  2. LEVAQUIN [Concomitant]

REACTIONS (3)
  - BLOOD PRESSURE DECREASED [None]
  - DYSPNOEA [None]
  - HEART RATE DECREASED [None]
